FAERS Safety Report 12991069 (Version 1)
Quarter: 2016Q4

REPORT INFORMATION
  Report Type: Spontaneous
  Country: US (occurrence: US)
  Receive Date: 20161201
  Receipt Date: 20161201
  Transmission Date: 20170207
  Serious: No
  Sender: FDA-Public Use
  Company Number: US-TEVA-708893USA

PATIENT
  Age: 35 Year
  Sex: Female

DRUGS (1)
  1. ACTIQ [Suspect]
     Active Substance: FENTANYL CITRATE
     Indication: PAIN
     Route: 002
     Dates: start: 2008

REACTIONS (3)
  - Product quality issue [Unknown]
  - Drug ineffective [Unknown]
  - Dysgeusia [Unknown]

NARRATIVE: CASE EVENT DATE: 201609
